FAERS Safety Report 21576046 (Version 1)
Quarter: 2022Q4

REPORT INFORMATION
  Report Type: Report from Study
  Country: US (occurrence: US)
  Receive Date: 20221110
  Receipt Date: 20221110
  Transmission Date: 20230112
  Serious: No
  Sender: FDA-Public Use
  Company Number: US-ABBVIE-22K-163-4510686-00

PATIENT
  Sex: Male

DRUGS (3)
  1. SKYRIZI [Suspect]
     Active Substance: RISANKIZUMAB-RZAA
     Indication: Psoriasis
     Dosage: WEEK 0
     Route: 058
     Dates: start: 20220629, end: 20220629
  2. SKYRIZI [Suspect]
     Active Substance: RISANKIZUMAB-RZAA
     Dosage: ONCE AT WEEK 4
     Route: 058
     Dates: start: 20220601, end: 20220601
  3. SKYRIZI [Suspect]
     Active Substance: RISANKIZUMAB-RZAA
     Dosage: FIRST ADMIN DATE 2022
     Route: 058

REACTIONS (4)
  - Arthralgia [Unknown]
  - Psoriasis [Not Recovered/Not Resolved]
  - White blood cell count decreased [Unknown]
  - Drug ineffective [Unknown]
